FAERS Safety Report 7713503-9 (Version None)
Quarter: 2011Q3

REPORT INFORMATION
  Report Type: 
  Country: None (occurrence: None)
  Receive Date: 20110822
  Receipt Date: 20110810
  Transmission Date: 20111222
  Serious: Yes (Hospitalization, Other)
  Sender: FDA-Public Use
  Company Number: AUR-APL-2011-04588

PATIENT
  Age: 18 Year
  Sex: Female

DRUGS (5)
  1. LAMOTRIGINE [Suspect]
     Indication: PRODUCT USED FOR UNKNOWN INDICATION
  2. LOTEPREDNOL (LOTEPREDNOL) [Concomitant]
  3. CYCLOSPORINE [Concomitant]
  4. BUPROPION HCL [Concomitant]
  5. ARIPIPRAZOLE [Concomitant]

REACTIONS (4)
  - STEVENS-JOHNSON SYNDROME [None]
  - EYE IRRITATION [None]
  - TOXIC EPIDERMAL NECROLYSIS [None]
  - YELLOW SKIN [None]
